FAERS Safety Report 15436524 (Version 2)
Quarter: 2018Q4

REPORT INFORMATION
  Report Type: Spontaneous
  Country: GB (occurrence: GB)
  Receive Date: 20180927
  Receipt Date: 20181009
  Transmission Date: 20190204
  Serious: Yes (Hospitalization, Disabling)
  Sender: FDA-Public Use
  Company Number: GB-PFIZER INC-2018382515

PATIENT
  Age: 43 Year
  Sex: Female
  Weight: 67 kg

DRUGS (8)
  1. FLUTICASONE. [Concomitant]
     Active Substance: FLUTICASONE
  2. VARENICLINE TARTRATE [Suspect]
     Active Substance: VARENICLINE TARTRATE
     Indication: SMOKING CESSATION THERAPY
     Dosage: UNK
     Route: 048
     Dates: start: 20180715, end: 20180731
  3. IBUPROFEN. [Concomitant]
     Active Substance: IBUPROFEN
  4. PARACETAMOL [Concomitant]
     Active Substance: ACETAMINOPHEN
  5. MORPHINE [Concomitant]
     Active Substance: MORPHINE
  6. SALBUTAMOL [Concomitant]
     Active Substance: ALBUTEROL
  7. UMECLIDINIUM [Concomitant]
     Active Substance: UMECLIDINIUM BROMIDE
  8. VILANTEROL [Concomitant]
     Active Substance: VILANTEROL TRIFENATATE

REACTIONS (5)
  - Rash macular [Recovering/Resolving]
  - Pruritus [Unknown]
  - Pain [Unknown]
  - Nausea [Recovered/Resolved]
  - Cellulitis [Unknown]

NARRATIVE: CASE EVENT DATE: 20180731
